FAERS Safety Report 19953004 (Version 1)
Quarter: 2021Q4

REPORT INFORMATION
  Report Type: Spontaneous
  Country: US (occurrence: US)
  Receive Date: 20211012
  Receipt Date: 20211012
  Transmission Date: 20220303
  Serious: No
  Sender: FDA-Public Use
  Company Number: None

PATIENT
  Age: 61 Year
  Sex: Male
  Weight: 124 kg

DRUGS (1)
  1. BUPROPION HYDROCHLORIDE [Suspect]
     Active Substance: BUPROPION HYDROCHLORIDE
     Route: 048
     Dates: start: 20210712, end: 20210805

REACTIONS (6)
  - Confusional state [None]
  - Dizziness [None]
  - Hallucination [None]
  - Mental status changes [None]
  - Vomiting [None]
  - Faeces discoloured [None]

NARRATIVE: CASE EVENT DATE: 20210729
